FAERS Safety Report 13152697 (Version 1)
Quarter: 2017Q1

REPORT INFORMATION
  Report Type: Spontaneous
  Country: US (occurrence: US)
  Receive Date: 20170125
  Receipt Date: 20170125
  Transmission Date: 20170428
  Serious: No
  Sender: FDA-Public Use
  Company Number: US-SHIRE-US201701081

PATIENT
  Age: 49 Year
  Sex: Female
  Weight: 68.27 kg

DRUGS (1)
  1. XIIDRA [Suspect]
     Active Substance: LIFITEGRAST
     Indication: SJOGREN^S SYNDROME
     Dosage: UNK, UNKNOWN
     Route: 047
     Dates: start: 20161115

REACTIONS (3)
  - Nausea [Unknown]
  - Product use issue [Unknown]
  - Dysgeusia [Unknown]

NARRATIVE: CASE EVENT DATE: 20161115
